FAERS Safety Report 5298193-X (Version None)
Quarter: 2007Q2

REPORT INFORMATION
  Report Type: 
  Country: None (occurrence: None)
  Receive Date: 20070416
  Receipt Date: 20070227
  Transmission Date: 20071010
  Serious: Yes (Other)
  Sender: FDA-Public Use
  Company Number: FR-SHR-FR-2007-012919

PATIENT
  Sex: Female

DRUGS (8)
  1. MAGNEVIST [Suspect]
     Route: 042
  2. MAGNEVIST [Suspect]
     Route: 042
  3. DOTAREM [Suspect]
     Indication: NUCLEAR MAGNETIC RESONANCE IMAGING
     Route: 042
     Dates: start: 20030101
  4. DOTAREM [Suspect]
     Route: 042
  5. DOTAREM [Suspect]
     Route: 042
  6. OMNISCAN [Suspect]
     Indication: NUCLEAR MAGNETIC RESONANCE IMAGING
     Route: 042
  7. OMNISCAN [Suspect]
     Route: 042
  8. OMNISCAN [Suspect]
     Route: 042

REACTIONS (1)
  - NEPHROGENIC FIBROSING DERMOPATHY [None]
